FAERS Safety Report 8403040-0 (Version None)
Quarter: 2012Q2

REPORT INFORMATION
  Report Type: 
  Country: None (occurrence: None)
  Receive Date: 20120601
  Receipt Date: 20120522
  Transmission Date: 20120825
  Serious: Yes (Hospitalization)
  Sender: FDA-Public Use
  Company Number: US-ELI_LILLY_AND_COMPANY-US201203006831

PATIENT
  Age: 77 Year
  Sex: Female
  Weight: 51 kg

DRUGS (20)
  1. COMBIVENT [Concomitant]
     Dosage: 2 DF, QID
  2. VITAMIN D [Concomitant]
     Dosage: 1000 IU, QD
  3. ALBUTEROL [Concomitant]
     Indication: RESPIRATORY DISORDER
     Dosage: 2.5 MG, UNK
  4. HYDROCODONE [Concomitant]
     Indication: HERPES ZOSTER
     Dosage: 10 MG, PRN
  5. NEOMYCIN SULFATE [Concomitant]
  6. ADVAIR DISKUS 100/50 [Concomitant]
     Dosage: 2 DF, BID
  7. GABAPENTIN [Concomitant]
     Dosage: UNK, OTHER
  8. SERTRALINE HYDROCHLORIDE [Concomitant]
     Dosage: 50 MG, QD
  9. FOLIC ACID [Concomitant]
     Dosage: 1 MG, UNK
  10. METHOTREXATE SODIUM [Concomitant]
     Dosage: 2.5 MG, WEEKLY (1/W)
  11. LANSOPRAZOLE [Concomitant]
     Dosage: 30 MG, BID
  12. METOCLOPRAMIDE HYDROCHLORIDE [Concomitant]
     Dosage: 10 MG, QD
  13. PREDNISONE TAB [Concomitant]
     Dosage: 5 MG, QD
  14. MECLIZINE [Concomitant]
     Dosage: 25 MG, PRN
  15. ACYCLOVIR [Concomitant]
     Dosage: 200 MG, TID
  16. CELEBREX [Concomitant]
     Dosage: 200 MG, QD
  17. FORTEO [Suspect]
     Indication: OSTEOPOROSIS
     Dosage: 20 UG, QD
     Route: 058
  18. METOPROLOL SUCCINATE [Concomitant]
     Dosage: 25 MG, QD
  19. POTASSIUM CHLORIDE [Concomitant]
     Dosage: 20 MEQ, QD
  20. HIDROCLOROTIAZIDE [Concomitant]
     Dosage: 25 MG, QD

REACTIONS (3)
  - ASTHENIA [None]
  - PNEUMONIA [None]
  - HERPES ZOSTER [None]
